FAERS Safety Report 23485039 (Version 1)
Quarter: 2024Q1

REPORT INFORMATION
  Report Type: Spontaneous
  Country: US (occurrence: US)
  Receive Date: 20240206
  Receipt Date: 20240206
  Transmission Date: 20240410
  Serious: Yes (Hospitalization, Other)
  Sender: FDA-Public Use
  Company Number: US-SA-SAC20240130001423

PATIENT
  Age: 21 Year
  Sex: Female

DRUGS (2)
  1. REZUROCK [Suspect]
     Active Substance: BELUMOSUDIL
     Indication: Graft versus host disease
     Dosage: 200 MG, QD
     Route: 048
     Dates: start: 20231106
  2. XOSPATA [Concomitant]
     Active Substance: GILTERITINIB
     Dosage: UNK

REACTIONS (3)
  - Acute kidney injury [Unknown]
  - Pelvic neoplasm [Unknown]
  - Dysuria [Unknown]
